FAERS Safety Report 8143018-8 (Version None)
Quarter: 2012Q1

REPORT INFORMATION
  Report Type: 
  Country: None (occurrence: None)
  Receive Date: 20120217
  Receipt Date: 20120208
  Transmission Date: 20120608
  Serious: No
  Sender: FDA-Public Use
  Company Number: US-BIOGENIDEC-2012BI005267

PATIENT
  Age: 63 Year
  Sex: Male

DRUGS (4)
  1. TYSABRI [Suspect]
     Indication: MULTIPLE SCLEROSIS
     Route: 042
     Dates: start: 20061120, end: 20081212
  2. TYSABRI [Suspect]
     Route: 042
     Dates: start: 20090601, end: 20110418
  3. TYSABRI [Suspect]
     Route: 042
     Dates: start: 20120131
  4. TYSABRI [Suspect]
     Route: 042
     Dates: start: 20110701, end: 20110729

REACTIONS (2)
  - MULTIPLE SCLEROSIS RELAPSE [None]
  - MALAISE [None]
